FAERS Safety Report 23545612 (Version 1)
Quarter: 2024Q1

REPORT INFORMATION
  Report Type: Spontaneous
  Country: US (occurrence: None)
  Receive Date: 20240218
  Receipt Date: 20240218
  Transmission Date: 20240410
  Serious: No
  Sender: FDA-Public Use
  Company Number: None

PATIENT
  Age: 33 Year
  Sex: Female

DRUGS (1)
  1. BUPROPION [Suspect]
     Active Substance: BUPROPION
     Dates: start: 20240120, end: 20240216

REACTIONS (8)
  - Swelling face [None]
  - Eye swelling [None]
  - Lip swelling [None]
  - Swelling face [None]
  - Pruritus [None]
  - Lip pruritus [None]
  - Erythema [None]
  - Paraesthesia [None]

NARRATIVE: CASE EVENT DATE: 20240214
